FAERS Safety Report 9704088 (Version 2)
Quarter: 2013Q4

REPORT INFORMATION
  Report Type: Spontaneous
  Country: US (occurrence: US)
  Receive Date: 20131122
  Receipt Date: 20131122
  Transmission Date: 20140711
  Serious: No
  Sender: FDA-Public Use
  Company Number: US-GLAXOSMITHKLINE-A0645409A

PATIENT
  Age: 64 Year
  Sex: Female

DRUGS (9)
  1. WELLBUTRIN SR [Suspect]
     Indication: DEPRESSION
     Dosage: 150MG PER DAY
     Route: 048
     Dates: start: 200907
  2. WELLBUTRIN XL [Suspect]
     Indication: DEPRESSION
     Dosage: 300MG PER DAY
     Route: 048
     Dates: start: 200701
  3. PAROXETINE [Suspect]
     Indication: DEPRESSION
     Route: 048
     Dates: start: 200601, end: 200701
  4. BUPROPION [Suspect]
     Indication: DEPRESSION
     Dosage: 150MG PER DAY
     Route: 048
     Dates: start: 201301
  5. PAXIL [Suspect]
  6. KLONOPIN [Concomitant]
  7. LISINOPRIL [Concomitant]
  8. TETRACYCLINE [Concomitant]
  9. CLONAZEPAM [Concomitant]

REACTIONS (4)
  - Anorgasmia [Unknown]
  - Feeling abnormal [Unknown]
  - Drug ineffective [Unknown]
  - Hunger [Unknown]
